FAERS Safety Report 10767059 (Version 2)
Quarter: 2015Q1

REPORT INFORMATION
  Report Type: Report from Study
  Country: PA (occurrence: PA)
  Receive Date: 20150205
  Receipt Date: 20150224
  Transmission Date: 20150721
  Serious: Yes (Hospitalization)
  Sender: FDA-Public Use
  Company Number: PHHY2015PA014274

PATIENT
  Age: 53 Year
  Sex: Female
  Weight: 105 kg

DRUGS (3)
  1. EXJADE [Suspect]
     Active Substance: DEFERASIROX
     Indication: SICKLE CELL ANAEMIA
     Dosage: 500 MG, QD
     Route: 048
  2. FOLIC ACID. [Concomitant]
     Active Substance: FOLIC ACID
     Indication: PRODUCT USED FOR UNKNOWN INDICATION
     Dosage: 5 MG, QD
     Route: 048
  3. VITAMIN B COMPLEX [Concomitant]
     Active Substance: CYANOCOBALAMIN\DEXPANTHENOL\NIACINAMIDE\PYRIDOXINE HYDROCHLORIDE\RIBOFLAVIN 5^-PHOSPHATE SODIUM\THIAMINE HYDROCHLORIDE\VITAMIN B COMPLEX
     Indication: PRODUCT USED FOR UNKNOWN INDICATION
     Dosage: 2 OT, QD
     Route: 048

REACTIONS (8)
  - Chest pain [Unknown]
  - Pain [Unknown]
  - Sickle cell anaemia with crisis [Unknown]
  - Syncope [Unknown]
  - Haemoglobin decreased [Not Recovered/Not Resolved]
  - Cerebral infarction [Unknown]
  - Poor venous access [Unknown]
  - Dizziness [Unknown]

NARRATIVE: CASE EVENT DATE: 20141231
